FAERS Safety Report 14780321 (Version 1)
Quarter: 2018Q2

REPORT INFORMATION
  Report Type: Spontaneous
  Country: JP (occurrence: JP)
  Receive Date: 20180419
  Receipt Date: 20180419
  Transmission Date: 20180711
  Serious: Yes (Other)
  Sender: FDA-Public Use
  Company Number: JP-MYLANLABS-2018M1025328

PATIENT
  Age: 38 Year
  Sex: Female

DRUGS (10)
  1. TOPIRAMATE. [Suspect]
     Active Substance: TOPIRAMATE
     Indication: STATUS EPILEPTICUS
     Dosage: 600 MG PER DAY
     Route: 065
  2. GABAPENTIN. [Suspect]
     Active Substance: GABAPENTIN
     Indication: STATUS EPILEPTICUS
     Dosage: 2400 MG PER DAY
     Route: 065
  3. CLOBAZAM [Concomitant]
     Active Substance: CLOBAZAM
     Indication: STATUS EPILEPTICUS
     Route: 065
  4. PHENOBARBITAL. [Suspect]
     Active Substance: PHENOBARBITAL
     Indication: STATUS EPILEPTICUS
     Dosage: 150 MG PER DAY
     Route: 065
  5. VALPROIC ACID. [Suspect]
     Active Substance: VALPROIC ACID
     Indication: STATUS EPILEPTICUS
     Dosage: 600 MG PER DAY
     Route: 065
  6. CARBAMAZEPINE. [Suspect]
     Active Substance: CARBAMAZEPINE
     Indication: STATUS EPILEPTICUS
     Dosage: 400 MG PER DAY
     Route: 065
  7. STIRIPENTOL [Concomitant]
     Active Substance: STIRIPENTOL
     Indication: STATUS EPILEPTICUS
     Dosage: 2500 MG PER DAY
     Route: 065
  8. PHENYTOIN. [Suspect]
     Active Substance: PHENYTOIN
     Indication: STATUS EPILEPTICUS
     Dosage: 300 MG PER DAY
     Route: 065
  9. LEVETIRACETAM. [Suspect]
     Active Substance: LEVETIRACETAM
     Indication: STATUS EPILEPTICUS
     Dosage: 3000 MG PER DAY
     Route: 065
  10. ZONISAMIDE. [Suspect]
     Active Substance: ZONISAMIDE
     Indication: STATUS EPILEPTICUS
     Dosage: 300 MG PER DAY
     Route: 065

REACTIONS (5)
  - Hepatitis [Unknown]
  - Pyrexia [Unknown]
  - Eosinophilia [Unknown]
  - Toxic epidermal necrolysis [Unknown]
  - Therapeutic product cross-reactivity [Unknown]
